FAERS Safety Report 8493396-5 (Version None)
Quarter: 2012Q3

REPORT INFORMATION
  Report Type: 
  Country: None (occurrence: None)
  Receive Date: 20120706
  Receipt Date: 20120628
  Transmission Date: 20120928
  Serious: Yes (Hospitalization)
  Sender: FDA-Public Use
  Company Number: US-CELGENEUS-163-21880-12063781

PATIENT
  Sex: Male

DRUGS (9)
  1. METOPROLOL [Concomitant]
     Route: 065
  2. CALCIUM D [Concomitant]
     Route: 065
  3. DEXAMETHASONE SODIUM PHOSPHATE [Concomitant]
     Route: 065
  4. OXYCONTIN [Concomitant]
     Route: 065
  5. SIMVASTATIN [Concomitant]
     Route: 065
  6. REVLIMID [Suspect]
     Indication: MULTIPLE MYELOMA
     Dosage: 25 MILLIGRAM
     Route: 048
     Dates: start: 20120401
  7. OMEPRAZOLE [Concomitant]
     Route: 065
  8. TERAZOSIN HCL [Concomitant]
     Route: 065
  9. WARFARIN SODIUM [Concomitant]
     Route: 065

REACTIONS (2)
  - UNEVALUABLE EVENT [None]
  - PNEUMONIA [None]
